FAERS Safety Report 6176413-7 (Version None)
Quarter: 2009Q2

REPORT INFORMATION
  Report Type: 
  Country: None (occurrence: None)
  Receive Date: 20090501
  Receipt Date: 20090422
  Transmission Date: 20091009
  Serious: Yes (Other)
  Sender: FDA-Public Use
  Company Number: US-MERCK-0703USA04950

PATIENT
  Age: 66 Year
  Sex: Female
  Weight: 66 kg

DRUGS (2)
  1. FOSAMAX [Suspect]
     Indication: OSTEOPOROSIS
     Route: 048
     Dates: start: 20010328, end: 20060101
  2. FOSAMAX [Suspect]
     Route: 048
     Dates: start: 19971010, end: 20010327

REACTIONS (19)
  - ANXIETY [None]
  - ARTHRALGIA [None]
  - BASAL CELL CARCINOMA [None]
  - CONSTIPATION [None]
  - DEPRESSION [None]
  - DYSPEPSIA [None]
  - ERYTHEMA [None]
  - EYE HAEMORRHAGE [None]
  - HEPATIC NEOPLASM [None]
  - MUSCULOSKELETAL PAIN [None]
  - NECK PAIN [None]
  - OSTEOMYELITIS [None]
  - OSTEONECROSIS [None]
  - PAIN IN EXTREMITY [None]
  - RENAL CYST [None]
  - RESORPTION BONE INCREASED [None]
  - SINUSITIS [None]
  - TRIGEMINAL NEURALGIA [None]
  - UPPER RESPIRATORY TRACT INFECTION [None]
